FAERS Safety Report 17834852 (Version 1)
Quarter: 2020Q2

REPORT INFORMATION
  Report Type: Spontaneous
  Country: US (occurrence: US)
  Receive Date: 20200528
  Receipt Date: 20200528
  Transmission Date: 20200714
  Serious: Yes (Life-Threatening, Hospitalization)
  Sender: FDA-Public Use
  Company Number: None

PATIENT
  Age: 12 Year
  Sex: Female

DRUGS (1)
  1. LIBERTY CBD TINCTURE, JACKSON^S COURAGE [Suspect]
     Active Substance: CANNABIDIOL\HERBALS
     Indication: FRONTAL LOBE EPILEPSY
     Dosage: ?          OTHER FREQUENCY:AS NEEDED;?
     Route: 048

REACTIONS (5)
  - Respiratory arrest [None]
  - Chemical poisoning [None]
  - Drug screen positive [None]
  - Product contamination chemical [None]
  - Seizure [None]

NARRATIVE: CASE EVENT DATE: 20200208
